FAERS Safety Report 10250804 (Version 2)
Quarter: 2014Q2

REPORT INFORMATION
  Report Type: Not Available
  Country: US (occurrence: US)
  Receive Date: 20140620
  Receipt Date: 20140626
  Transmission Date: 20141212
  Serious: Yes (Hospitalization)
  Sender: FDA-Public Use
  Company Number: US-ONYX-2014-1361

PATIENT
  Age: 58 Year
  Sex: Male

DRUGS (6)
  1. KYPROLIS [Suspect]
     Indication: PLASMA CELL MYELOMA
     Route: 042
     Dates: start: 20140604, end: 20140605
  2. KYPROLIS [Suspect]
     Route: 042
     Dates: start: 20140618
  3. GABAPENTIN [Concomitant]
     Indication: NEUROPATHY PERIPHERAL
  4. VALTREX [Concomitant]
     Indication: PROPHYLAXIS
  5. CYMBALTA [Concomitant]
     Indication: NEUROPATHY PERIPHERAL
  6. CYMBALTA [Concomitant]
     Indication: DEPRESSION

REACTIONS (2)
  - Atrial fibrillation [Recovered/Resolved]
  - Pneumonia [Recovered/Resolved]
